FAERS Safety Report 13040057 (Version 1)
Quarter: 2016Q4

REPORT INFORMATION
  Report Type: Spontaneous
  Country: DE (occurrence: DE)
  Receive Date: 20161219
  Receipt Date: 20161219
  Transmission Date: 20170207
  Serious: Yes (Hospitalization)
  Sender: FDA-Public Use
  Company Number: DE-TEVA-719915GER

PATIENT
  Age: 49 Year
  Sex: Female

DRUGS (4)
  1. THIOTEPA. [Suspect]
     Active Substance: THIOTEPA
     Dosage: 5 MG/KG ON DAY 6 AND DAY 5 PRIOR TO THE TRANSPLANT
     Route: 065
  2. TREOSULFAN [Suspect]
     Active Substance: TREOSULFAN
     Dosage: 10 MG/M2 ON DAY 8 AND DAY 7 PRIOR TO THE TRANSPLANT
     Route: 065
  3. RITUXIMAB [Suspect]
     Active Substance: RITUXIMAB
     Dosage: 375 MG/M2 ON DAY 9 AND DAY 1 PRIOR TO THE TRANSPLANT
     Route: 065
  4. FLUDARABINE [Suspect]
     Active Substance: FLUDARABINE PHOSPHATE
     Dosage: 30 MG/M2 ON DAY 5 TO DAY 2 PRIOR TO THE TRANSPLANT
     Route: 065

REACTIONS (3)
  - Mucosal inflammation [Recovering/Resolving]
  - Liver disorder [Recovering/Resolving]
  - Graft versus host disease in gastrointestinal tract [Recovering/Resolving]
